FAERS Safety Report 19227456 (Version 2)
Quarter: 2021Q2

REPORT INFORMATION
  Report Type: Spontaneous
  Country: US (occurrence: US)
  Receive Date: 20210506
  Receipt Date: 20210521
  Transmission Date: 20210717
  Serious: Yes (Other)
  Sender: FDA-Public Use
  Company Number: US-ORGANON-O2104USA001349

PATIENT
  Sex: Female
  Weight: 90.81 kg

DRUGS (6)
  1. TAMIFLU [Concomitant]
     Active Substance: OSELTAMIVIR PHOSPHATE
     Dosage: 1 CAPSULE EVERY TWO DAYS
     Route: 048
  2. NEXPLANON [Suspect]
     Active Substance: ETONOGESTREL
     Indication: CONTRACEPTION
     Dosage: 1 DOSAGE FORM
     Route: 059
     Dates: start: 20210413
  3. VICKS 44 CUSTOM CARE DRY COUGH [Concomitant]
  4. NEXPLANON [Suspect]
     Active Substance: ETONOGESTREL
     Indication: CONTRACEPTION
     Dosage: 1 DOSAGE FORM, IN THE LEFT UPPER ARM (68 MG ONCE)
     Route: 059
     Dates: start: 20180123, end: 20210121
  5. AMOXICILLIN + CLAVULANIC ACID [Concomitant]
     Active Substance: AMOXICILLIN\CLAVULANIC ACID
     Dosage: 1 TABLET EVERY 12 HOURS
     Route: 048
  6. NEXPLANON [Suspect]
     Active Substance: ETONOGESTREL
     Indication: CONTRACEPTION
     Dosage: 1 IMPLANT IN THE LEFT ARM (68 MG ONCE)
     Route: 059
     Dates: start: 20210121, end: 20210413

REACTIONS (4)
  - Fall [Unknown]
  - Implant site pain [Unknown]
  - Device breakage [Recovered/Resolved]
  - Device dislocation [Recovered/Resolved]

NARRATIVE: CASE EVENT DATE: 2021
